FAERS Safety Report 6329817-3 (Version None)
Quarter: 2009Q3

REPORT INFORMATION
  Report Type: 
  Country: None (occurrence: None)
  Receive Date: 20090826
  Receipt Date: 20090824
  Transmission Date: 20100115
  Serious: Yes (Death)
  Sender: FDA-Public Use
  Company Number: US-ABBOTT-09P-163-0586694-00

PATIENT
  Sex: Female
  Weight: 90.8 kg

DRUGS (3)
  1. HUMIRA [Suspect]
     Indication: PSORIASIS
     Dates: start: 20090601, end: 20090719
  2. UNKNOWN ANTIHYPERTENSIVE [Concomitant]
     Indication: HYPERTENSION
     Dates: end: 20090719
  3. UNKNOWN ITCHING PILL [Concomitant]
     Indication: PSORIASIS
     Dates: end: 20090719

REACTIONS (1)
  - CHEST PAIN [None]
